FAERS Safety Report 10446070 (Version 1)
Quarter: 2014Q3

REPORT INFORMATION
  Report Type: Spontaneous
  Country: FR (occurrence: FR)
  Receive Date: 20140910
  Receipt Date: 20140910
  Transmission Date: 20150326
  Serious: Yes (Other)
  Sender: FDA-Public Use
  Company Number: FR-009507513-1409FRA004929

PATIENT
  Sex: Male

DRUGS (3)
  1. CALCIPARINE [Suspect]
     Active Substance: HEPARIN CALCIUM
     Indication: PRODUCT USED FOR UNKNOWN INDICATION
     Dosage: SOUS CUTANEE; 5000 IU EACH 9 HOURS
     Route: 042
     Dates: start: 20140714, end: 20140716
  2. ORGARAN [Suspect]
     Active Substance: DANAPAROID SODIUM
     Indication: PRODUCT USED FOR UNKNOWN INDICATION
     Dosage: STRENGTH: 750 UI AXA/ 0.6 ML; DAILY DOSE: 2250 IU ONCE A
     Route: 042
     Dates: start: 20140717, end: 20140717
  3. ARGANOVA [Suspect]
     Active Substance: ARGATROBAN
     Indication: PRODUCT USED FOR UNKNOWN INDICATION
     Dosage: UNK
     Dates: start: 20140718, end: 20140721

REACTIONS (1)
  - Thrombocytopenia [Recovered/Resolved]
